FAERS Safety Report 21159415 (Version 3)
Quarter: 2022Q3

REPORT INFORMATION
  Report Type: Report from Study
  Country: BE (occurrence: BE)
  Receive Date: 20220802
  Receipt Date: 20220915
  Transmission Date: 20221027
  Serious: Yes (Hospitalization, Other)
  Sender: FDA-Public Use
  Company Number: BE-NOVARTISPH-NVSC2022BE171644

PATIENT
  Age: 35 Year
  Sex: Male

DRUGS (3)
  1. ELTROMBOPAG [Suspect]
     Active Substance: ELTROMBOPAG
     Indication: Stem cell transplant
     Dosage: 25 MG
     Route: 065
  2. ELTROMBOPAG [Suspect]
     Active Substance: ELTROMBOPAG
     Dosage: 75 MG
     Route: 048
     Dates: start: 20210716, end: 20211105
  3. TACROLIMUS [Concomitant]
     Active Substance: TACROLIMUS
     Indication: Allogenic stem cell transplantation
     Dosage: UNK
     Route: 065
     Dates: start: 20210518, end: 20211004

REACTIONS (6)
  - Thrombotic microangiopathy [Recovered/Resolved]
  - Acute kidney injury [Recovered/Resolved with Sequelae]
  - Bronchiolitis [Unknown]
  - Thrombocytopenia [Unknown]
  - Sinus tachycardia [Unknown]
  - Anaemia [Unknown]

NARRATIVE: CASE EVENT DATE: 20210923
